FAERS Safety Report 17805068 (Version 4)
Quarter: 2021Q1

REPORT INFORMATION
  Report Type: Report from Study
  Country: CO (occurrence: CO)
  Receive Date: 20200519
  Receipt Date: 20210219
  Transmission Date: 20210419
  Serious: Yes (Other)
  Sender: FDA-Public Use
  Company Number: NVSC2020CO074356

PATIENT
  Age: 53 Year
  Sex: Female
  Weight: 90 kg

DRUGS (6)
  1. TRAMADOL. [Suspect]
     Active Substance: TRAMADOL
     Indication: BACK PAIN
     Dosage: 10 DROPS , QD
     Route: 048
  2. KISQALI [Suspect]
     Active Substance: RIBOCICLIB
     Indication: BREAST CANCER METASTATIC
     Dosage: 600 MG, QD
     Route: 048
  3. AMLODIPINE [Concomitant]
     Active Substance: AMLODIPINE BESYLATE
     Indication: HYPERTENSION
     Dosage: UNK, QD
     Route: 048
     Dates: end: 20201124
  4. FEMARA [Suspect]
     Active Substance: LETROZOLE
     Indication: BREAST CANCER
     Dosage: UNK, QD
     Route: 048
     Dates: start: 201911, end: 20201124
  5. LOSARTAN. [Suspect]
     Active Substance: LOSARTAN
     Indication: HYPERTENSION
     Dosage: UNK, QD
     Route: 048
     Dates: end: 20201124
  6. KISQALI [Suspect]
     Active Substance: RIBOCICLIB
     Dosage: 3 DF, QD
     Route: 048
     Dates: start: 201911, end: 20201124

REACTIONS (24)
  - Rib fracture [Unknown]
  - Gait disturbance [Unknown]
  - Muscle fatigue [Recovered/Resolved]
  - Product dose omission issue [Unknown]
  - Condition aggravated [Unknown]
  - Dyspnoea [Unknown]
  - Upper limb fracture [Not Recovered/Not Resolved]
  - Neoplasm malignant [Unknown]
  - Drug ineffective [Unknown]
  - Metastases to liver [Unknown]
  - Lymphoedema [Recovered/Resolved]
  - Feeling abnormal [Recovered/Resolved]
  - Metastases to lung [Unknown]
  - Metastases to bone [Unknown]
  - Cough [Unknown]
  - Arthralgia [Unknown]
  - Back pain [Unknown]
  - Product packaging quantity issue [Unknown]
  - Lymphatic disorder [Unknown]
  - Hypokinesia [Unknown]
  - Respiration abnormal [Unknown]
  - Pulmonary mass [Unknown]
  - Ageusia [Unknown]
  - Pain in extremity [Recovered/Resolved]

NARRATIVE: CASE EVENT DATE: 202006
